FAERS Safety Report 20887349 (Version 1)
Quarter: 2022Q2

REPORT INFORMATION
  Report Type: Spontaneous
  Country: IT (occurrence: IT)
  Receive Date: 20220528
  Receipt Date: 20220528
  Transmission Date: 20220721
  Serious: Yes (Hospitalization)
  Sender: FDA-Public Use
  Company Number: None

PATIENT
  Age: 87 Year
  Sex: Female

DRUGS (5)
  1. HYDROCHLOROTHIAZIDE\VALSARTAN [Interacting]
     Active Substance: HYDROCHLOROTHIAZIDE\VALSARTAN
     Indication: Hypertension
     Dosage: UNK
     Route: 048
     Dates: start: 20220417, end: 20220419
  2. METFORMIN\SITAGLIPTIN [Interacting]
     Active Substance: METFORMIN\SITAGLIPTIN
     Indication: Diabetes mellitus
     Dosage: 2 DOSAGE FORM
     Route: 048
     Dates: start: 20220101, end: 20220419
  3. EDOXABAN TOSYLATE [Concomitant]
     Active Substance: EDOXABAN TOSYLATE
     Indication: Product used for unknown indication
     Dosage: UNK
     Route: 065
  4. CLARITHROMYCIN [Concomitant]
     Active Substance: CLARITHROMYCIN
     Indication: Productive cough
     Dosage: UNK
     Route: 065
  5. FLUIMUCIL [Concomitant]
     Active Substance: ACETYLCYSTEINE
     Indication: Productive cough
     Dosage: UNK
     Route: 065

REACTIONS (3)
  - Lactic acidosis [Not Recovered/Not Resolved]
  - Drug interaction [Not Recovered/Not Resolved]
  - Hyperkalaemia [Not Recovered/Not Resolved]

NARRATIVE: CASE EVENT DATE: 20220419
